FAERS Safety Report 7176558-9 (Version None)
Quarter: 2010Q4

REPORT INFORMATION
  Report Type: 
  Country: None (occurrence: None)
  Receive Date: 20101220
  Receipt Date: 20101214
  Transmission Date: 20110411
  Serious: Yes (Death, Hospitalization, Other)
  Sender: FDA-Public Use
  Company Number: US-CELGENEUS-163-21880-10121615

PATIENT
  Age: 68 Year
  Sex: Female

DRUGS (7)
  1. REVLIMID [Suspect]
     Indication: MYELODYSPLASTIC SYNDROME
     Route: 048
     Dates: start: 20100201, end: 20100405
  2. PREDNISONE [Concomitant]
     Route: 065
  3. HYDROXYUREA [Concomitant]
     Route: 065
  4. OMEPRAZOLE [Concomitant]
     Route: 065
  5. HYDROXYZINE [Concomitant]
     Route: 065
  6. HYDROCHLOROTHIAZIDE [Concomitant]
     Route: 065
  7. LISINOPRIL [Concomitant]
     Route: 065

REACTIONS (4)
  - GASTROINTESTINAL HAEMORRHAGE [None]
  - HAEMATEMESIS [None]
  - RENAL FAILURE ACUTE [None]
  - THROMBOCYTOPENIA [None]
